FAERS Safety Report 19042638 (Version 2)
Quarter: 2021Q3

REPORT INFORMATION
  Report Type: Spontaneous
  Country: CN (occurrence: CN)
  Receive Date: 20210323
  Receipt Date: 20210701
  Transmission Date: 20211014
  Serious: No
  Sender: FDA-Public Use
  Company Number: CN-NOVOPROD-796402

PATIENT
  Age: 62 Year
  Sex: Male

DRUGS (2)
  1. LEVEMIR [Suspect]
     Active Substance: INSULIN DETEMIR
     Indication: DIABETES MELLITUS
     Dosage: 6 IU, QD
     Route: 065
  2. NOVORAPID [Suspect]
     Active Substance: INSULIN ASPART
     Indication: DIABETES MELLITUS
     Dosage: 40 IU, QD (16 U BEFORE BREAKFAST, 14 U BEFORE LUNCH AND 10 U BEFORE DINNER)
     Route: 058
     Dates: start: 20210228, end: 20210308

REACTIONS (1)
  - Hypoglycaemia [Recovering/Resolving]

NARRATIVE: CASE EVENT DATE: 20210301
